FAERS Safety Report 15387663 (Version 3)
Quarter: 2018Q3

REPORT INFORMATION
  Report Type: Spontaneous
  Country: MA (occurrence: MA)
  Receive Date: 20180914
  Receipt Date: 20180924
  Transmission Date: 20181010
  Serious: Yes (Hospitalization)
  Sender: FDA-Public Use
  Company Number: MA-PFIZER INC-2018373897

PATIENT
  Age: 34 Year
  Sex: Female

DRUGS (1)
  1. ARTOTEC [Suspect]
     Active Substance: DICLOFENAC SODIUM\MISOPROSTOL
     Indication: RHEUMATOID ARTHRITIS
     Dosage: TABLETS
     Route: 048

REACTIONS (2)
  - Abortion spontaneous [Recovered/Resolved]
  - Anembryonic gestation [Recovered/Resolved]

NARRATIVE: CASE EVENT DATE: 201601
